FAERS Safety Report 25032306 (Version 1)
Quarter: 2025Q1

REPORT INFORMATION
  Report Type: Spontaneous
  Country: CN (occurrence: CN)
  Receive Date: 20250303
  Receipt Date: 20250303
  Transmission Date: 20250408
  Serious: Yes (Other)
  Sender: BAXTER
  Company Number: None

PATIENT
  Age: 38 Year
  Sex: Male
  Weight: 115 kg

DRUGS (3)
  1. MANNITOL [Suspect]
     Active Substance: MANNITOL
     Indication: Basal ganglia haemorrhage
     Route: 041
     Dates: start: 20250207, end: 20250217
  2. MANNITOL [Suspect]
     Active Substance: MANNITOL
     Indication: Diuretic therapy
  3. MANNITOL [Suspect]
     Active Substance: MANNITOL
     Indication: Reduction of increased intracranial pressure

REACTIONS (2)
  - Renal injury [Unknown]
  - Renal impairment [Recovering/Resolving]

NARRATIVE: CASE EVENT DATE: 20250213
